FAERS Safety Report 7297275-0 (Version None)
Quarter: 2011Q1

REPORT INFORMATION
  Report Type: 
  Country: None (occurrence: None)
  Receive Date: 20110216
  Receipt Date: 20110208
  Transmission Date: 20110831
  Serious: Yes (Other)
  Sender: FDA-Public Use
  Company Number: PHHY2011JP08698

PATIENT
  Age: 39 Year
  Sex: Female

DRUGS (2)
  1. PREDNISOLONE [Concomitant]
     Indication: GRAFT VERSUS HOST DISEASE
     Route: 048
  2. CYCLOPHOSPHAMIDE [Suspect]
     Indication: UNRELATED DONOR BONE MARROW TRANSPLANTATION THERAPY
     Route: 048

REACTIONS (12)
  - ERYTHEMA [None]
  - PETECHIAE [None]
  - OEDEMA PERIPHERAL [None]
  - CHRONIC GRAFT VERSUS HOST DISEASE [None]
  - SYSTEMIC SCLEROSIS [None]
  - RAYNAUD'S PHENOMENON [None]
  - OEDEMA [None]
  - SKIN EROSION [None]
  - ACUTE GRAFT VERSUS HOST DISEASE [None]
  - SKIN DISORDER [None]
  - GASTROINTESTINAL DISORDER [None]
  - CYANOSIS [None]
